FAERS Safety Report 18182987 (Version 1)
Quarter: 2020Q3

REPORT INFORMATION
  Report Type: Spontaneous
  Country: US (occurrence: US)
  Receive Date: 20200821
  Receipt Date: 20200821
  Transmission Date: 20201103
  Serious: No
  Sender: FDA-Public Use
  Company Number: US-TEVA-2020-US-1817677

PATIENT
  Sex: Female

DRUGS (1)
  1. PENICILLINS [Suspect]
     Active Substance: PENICILLIN
     Route: 065

REACTIONS (2)
  - Rash [Unknown]
  - Pruritus [Unknown]
